FAERS Safety Report 16538910 (Version 1)
Quarter: 2019Q3

REPORT INFORMATION
  Report Type: Spontaneous
  Country: US (occurrence: US)
  Receive Date: 20190708
  Receipt Date: 20190708
  Transmission Date: 20191004
  Serious: No
  Sender: FDA-Public Use
  Company Number: US-CONCORDIA PHARMACEUTICALS INC.-GSH201807-002552

PATIENT
  Age: 79 Year
  Sex: Male

DRUGS (1)
  1. UROXATRAL [Suspect]
     Active Substance: ALFUZOSIN HYDROCHLORIDE
     Indication: DYSURIA

REACTIONS (1)
  - Dizziness [Unknown]
